FAERS Safety Report 4602976-6 (Version None)
Quarter: 2005Q1

REPORT INFORMATION
  Report Type: 
  Country: None (occurrence: None)
  Receive Date: 20050307
  Receipt Date: 20050218
  Transmission Date: 20050727
  Serious: No
  Sender: FDA-Public Use
  Company Number: 10339

PATIENT
  Sex: Female

DRUGS (4)
  1. METHOTREXATE [Suspect]
     Indication: NEOPLASM MALIGNANT
  2. CHLORAMBUCIL [Concomitant]
  3. FLUOROURACIL [Concomitant]
  4. PREDNISOLONE [Concomitant]

REACTIONS (7)
  - BODY DYSMORPHIC DISORDER [None]
  - CARDIAC MURMUR [None]
  - DRUG EXPOSURE DURING PREGNANCY [None]
  - FACIAL DYSMORPHISM [None]
  - LIMB DEFORMITY [None]
  - LOW SET EARS [None]
  - PREMATURE LABOUR [None]
